FAERS Safety Report 6377079-3 (Version None)
Quarter: 2009Q3

REPORT INFORMATION
  Report Type: 
  Country: None (occurrence: None)
  Receive Date: 20090923
  Receipt Date: 20090923
  Transmission Date: 20100115
  Serious: Yes (Hospitalization)
  Sender: FDA-Public Use
  Company Number: None

PATIENT
  Age: 66 Year
  Sex: Male
  Weight: 47.4 kg

DRUGS (2)
  1. ENOXAPARIN SODIUM [Suspect]
     Indication: PULMONARY OEDEMA
     Dosage: 50 MG BID SQ
     Dates: start: 20090613, end: 20090627
  2. ENOXAPARIN SODIUM [Suspect]
     Indication: PULMONARY OEDEMA
     Dosage: 7.5 MG PM PO
     Route: 048
     Dates: start: 20090626, end: 20090630

REACTIONS (7)
  - GASTROINTESTINAL HAEMORRHAGE [None]
  - HAEMOGLOBIN DECREASED [None]
  - POLYP [None]
  - POST PROCEDURAL HAEMORRHAGE [None]
  - PROCEDURAL SITE REACTION [None]
  - PROTHROMBIN TIME PROLONGED [None]
  - ULCER [None]
